FAERS Safety Report 9641069 (Version 1)
Quarter: 2013Q4

REPORT INFORMATION
  Report Type: Spontaneous
  Country: US (occurrence: US)
  Receive Date: 20131023
  Receipt Date: 20131023
  Transmission Date: 20140711
  Serious: Yes (Other)
  Sender: FDA-Public Use
  Company Number: US-TEVA-424618USA

PATIENT
  Sex: Female

DRUGS (1)
  1. SYNRIBO [Suspect]

REACTIONS (2)
  - Bone marrow failure [Unknown]
  - Blood count abnormal [Unknown]
